FAERS Safety Report 20429667 (Version 1)
Quarter: 2022Q1

REPORT INFORMATION
  Report Type: Report from Study
  Country: FR (occurrence: FR)
  Receive Date: 20220204
  Receipt Date: 20220204
  Transmission Date: 20220423
  Serious: Yes (Hospitalization, Other)
  Sender: FDA-Public Use
  Company Number: FR-SERVIER-S19009017

PATIENT

DRUGS (12)
  1. PEGASPARGASE [Suspect]
     Active Substance: PEGASPARGASE
     Indication: Acute lymphocytic leukaemia
     Dosage: 2000 IU D6
     Route: 042
     Dates: start: 20190729, end: 20190729
  2. TN UNSPECIFIED [Concomitant]
     Indication: Acute lymphocytic leukaemia
     Dosage: 15.7 MG, ON DAYS 1 TO 5
     Route: 048
     Dates: start: 20190724, end: 20190728
  3. TN UNSPECIFIED [Concomitant]
     Dosage: 7 MG, ONE DOSE ON DAY 6
     Route: 048
     Dates: start: 20190729, end: 20190729
  4. TN UNSPECIFIED [Concomitant]
     Indication: Acute lymphocytic leukaemia
     Dosage: 80 MG, ON DAYS 1 TO 5
     Route: 048
     Dates: start: 20190724, end: 20190728
  5. TN UNSPECIFIED [Concomitant]
     Indication: Acute lymphocytic leukaemia
     Dosage: 1.2 MG, ON DAY 1, DAY 6
     Route: 042
     Dates: start: 20190724, end: 20190729
  6. TN UNSPECIFIED [Concomitant]
     Indication: Acute lymphocytic leukaemia
     Dosage: 3950 MG, ON DAY 1
     Route: 042
     Dates: start: 20190724, end: 20190724
  7. TN UNSPECIFIED [Concomitant]
     Dosage: 12 MG, ON DAY 2
     Route: 037
     Dates: start: 20190725, end: 20190725
  8. TN UNSPECIFIED [Concomitant]
     Indication: Acute lymphocytic leukaemia
     Dosage: 15 MG, ON DAY 2
     Route: 037
     Dates: start: 20190725, end: 20190725
  9. TN UNSPECIFIED [Concomitant]
     Indication: Acute lymphocytic leukaemia
     Dosage: 30 MG, ON DAY 2
     Route: 037
     Dates: start: 20190725, end: 20190725
  10. TN UNSPECIFIED [Concomitant]
     Dosage: 1600 MG, ONE DOSE ON DAY 5
     Route: 042
     Dates: start: 20190728, end: 20190728
  11. ESOMEPRAZOLE [Concomitant]
     Active Substance: ESOMEPRAZOLE
     Indication: Product used for unknown indication
     Dosage: 1 UNK, QD
     Route: 048
     Dates: start: 20190303
  12. BACTRIM [Concomitant]
     Active Substance: SULFAMETHOXAZOLE\TRIMETHOPRIM
     Indication: Product used for unknown indication
     Dosage: 10 ML, QD
     Route: 048
     Dates: start: 20190304

REACTIONS (2)
  - Pancreatitis [Recovered/Resolved]
  - Gamma-glutamyltransferase increased [Recovered/Resolved]

NARRATIVE: CASE EVENT DATE: 20190801
